FAERS Safety Report 7995766-8 (Version None)
Quarter: 2011Q4

REPORT INFORMATION
  Report Type: 
  Country: None (occurrence: None)
  Receive Date: 20111216
  Receipt Date: 20111202
  Transmission Date: 20120403
  Serious: Yes (Other)
  Sender: FDA-Public Use
  Company Number: US-1189389

PATIENT
  Age: 33 Year
  Sex: Female

DRUGS (1)
  1. PROPARACAINE HCL [Suspect]
     Dosage: OPHTHALMIC
     Route: 047

REACTIONS (9)
  - PAIN [None]
  - KERATITIS [None]
  - CONJUNCTIVAL OEDEMA [None]
  - DERMATITIS CONTACT [None]
  - DRUG ABUSE [None]
  - PERIORBITAL OEDEMA [None]
  - EYE PAIN [None]
  - CORNEAL EPITHELIUM DEFECT [None]
  - CORNEAL INFILTRATES [None]
